FAERS Safety Report 6634579-6 (Version None)
Quarter: 2010Q1

REPORT INFORMATION
  Report Type: 
  Country: None (occurrence: None)
  Receive Date: 20100315
  Receipt Date: 20100308
  Transmission Date: 20100710
  Serious: Yes (Other)
  Sender: FDA-Public Use
  Company Number: A0848880A

PATIENT
  Age: 72 Year
  Sex: Female

DRUGS (3)
  1. ADVAIR DISKUS 100/50 [Suspect]
     Indication: CHRONIC OBSTRUCTIVE PULMONARY DISEASE
     Route: 055
     Dates: start: 20070101
  2. SPIRIVA [Concomitant]
  3. NORVASC [Concomitant]

REACTIONS (5)
  - COUGH [None]
  - DRUG ADMINISTRATION ERROR [None]
  - DYSGEUSIA [None]
  - PRODUCT QUALITY ISSUE [None]
  - SELF-MEDICATION [None]
